FAERS Safety Report 7373934-6 (Version None)
Quarter: 2011Q1

REPORT INFORMATION
  Report Type: 
  Country: None (occurrence: None)
  Receive Date: 20110317
  Receipt Date: 20110309
  Transmission Date: 20110831
  Serious: Yes (Death, Life-Threatening, Hospitalization)
  Sender: FDA-Public Use
  Company Number: 2011SP010839

PATIENT

DRUGS (1)
  1. SAPHRIS [Suspect]
     Indication: SCHIZOPHRENIA

REACTIONS (1)
  - DEATH [None]
